FAERS Safety Report 17974631 (Version 3)
Quarter: 2020Q3

REPORT INFORMATION
  Report Type: Spontaneous
  Country: FR (occurrence: FR)
  Receive Date: 20200702
  Receipt Date: 20200714
  Transmission Date: 20201103
  Serious: Yes (Other)
  Sender: FDA-Public Use
  Company Number: FR-009507513-2006FRA010580

PATIENT
  Sex: Female

DRUGS (3)
  1. ETONOGESTREL IMPLANT? UNKNOWN [Suspect]
     Active Substance: ETONOGESTREL
     Dosage: 1 IMPLANT IN RIGHT ARM
     Route: 059
     Dates: start: 20110928
  2. ETONOGESTREL IMPLANT? UNKNOWN [Suspect]
     Active Substance: ETONOGESTREL
     Dosage: 1 IMPLANT IN LEFT ARM  (LEFT?HANDED: DOMINANT ARM)
     Route: 059
     Dates: start: 2008
  3. NEXPLANON [Suspect]
     Active Substance: ETONOGESTREL
     Dosage: 1 IMPLANT IN LEFT ARM
     Route: 059
     Dates: start: 20150522

REACTIONS (15)
  - Adrenal insufficiency [Unknown]
  - Oedema [Unknown]
  - Incorrect product administration duration [Unknown]
  - Implant site pain [Unknown]
  - Incorrect product administration duration [Unknown]
  - Wrong technique in product usage process [Unknown]
  - Wrong technique in product usage process [Unknown]
  - Incorrect product administration duration [Unknown]
  - Complication of device removal [Not Recovered/Not Resolved]
  - Overdose [Unknown]
  - Implant site oedema [Unknown]
  - Complication associated with device [Recovered/Resolved]
  - Complication associated with device [Recovered/Resolved]
  - Cushing^s syndrome [Unknown]
  - Complication associated with device [Not Recovered/Not Resolved]

NARRATIVE: CASE EVENT DATE: 2008
